FAERS Safety Report 22378463 (Version 1)
Quarter: 2023Q2

REPORT INFORMATION
  Report Type: Report from Study
  Country: US (occurrence: US)
  Receive Date: 20230529
  Receipt Date: 20230529
  Transmission Date: 20230722
  Serious: Yes (Other)
  Sender: FDA-Public Use
  Company Number: US-TAKEDA-2022TUS056217

PATIENT
  Age: 74 Year
  Sex: Female
  Weight: 90.7 kg

DRUGS (27)
  1. HUMAN IMMUNOGLOBULIN G [Suspect]
     Active Substance: HUMAN IMMUNOGLOBULIN G
     Indication: Immunodeficiency common variable
     Dosage: 15 GRAM, Q2WEEKS
     Route: 058
     Dates: start: 20210504
  2. HUMAN IMMUNOGLOBULIN G [Suspect]
     Active Substance: HUMAN IMMUNOGLOBULIN G
     Indication: Congenital hypogammaglobulinaemia
     Dosage: 15 GRAM, Q2WEEKS
     Route: 058
     Dates: start: 20220504
  3. DIPHENHYDRAMINE [Concomitant]
     Active Substance: DIPHENHYDRAMINE
     Route: 065
  4. REPATHA [Concomitant]
     Active Substance: EVOLOCUMAB
     Route: 065
  5. ESTRADIOL [Concomitant]
     Active Substance: ESTRADIOL
  6. CHLORPHENIRAMINE MALEATE [Concomitant]
     Active Substance: CHLORPHENIRAMINE MALEATE
     Route: 065
  7. RITUXAN [Concomitant]
     Active Substance: RITUXIMAB
     Route: 065
  8. EPINEPHRINE [Concomitant]
     Active Substance: EPINEPHRINE
     Route: 065
  9. FLUTICASONE [Concomitant]
     Active Substance: FLUTICASONE
     Route: 065
  10. BACTRIM [Concomitant]
     Active Substance: SULFAMETHOXAZOLE\TRIMETHOPRIM
     Route: 065
  11. EZETIMIBE [Concomitant]
     Active Substance: EZETIMIBE
     Route: 065
  12. AZITHROMYCIN [Concomitant]
     Active Substance: AZITHROMYCIN
     Route: 065
  13. GABAPENTIN [Concomitant]
     Active Substance: GABAPENTIN
     Route: 065
  14. ZYRTEC [Concomitant]
     Active Substance: CETIRIZINE HYDROCHLORIDE
     Route: 065
  15. VITAMIN D3 [Concomitant]
     Active Substance: CHOLECALCIFEROL
     Route: 065
  16. ACETAMINOPHEN [Concomitant]
     Active Substance: ACETAMINOPHEN
     Route: 065
  17. OXYGEN [Concomitant]
     Active Substance: OXYGEN
     Route: 065
  18. DICLOFENAC SODIUM [Concomitant]
     Active Substance: DICLOFENAC SODIUM
     Route: 065
  19. PREDNISONE [Concomitant]
     Active Substance: PREDNISONE
     Route: 065
  20. FAMOTIDINE [Concomitant]
     Active Substance: FAMOTIDINE
  21. SIMETHICONE (DIMETHICONE) [Concomitant]
     Active Substance: DIMETHICONE
     Route: 065
  22. VALSARTAN [Concomitant]
     Active Substance: VALSARTAN
     Route: 065
  23. METRONIDAZOLE [Concomitant]
     Active Substance: METRONIDAZOLE
     Route: 065
  24. Lmx [Concomitant]
     Route: 065
  25. METHOTREXATE [Concomitant]
     Active Substance: METHOTREXATE
  26. CICLOPIROX [Concomitant]
     Active Substance: CICLOPIROX
  27. DIPHENHYDRAMINE HYDROCHLORIDE [Concomitant]
     Active Substance: DIPHENHYDRAMINE HYDROCHLORIDE

REACTIONS (7)
  - Knee arthroplasty [Unknown]
  - Limb injury [Unknown]
  - Tongue erythema [Unknown]
  - Tongue coated [Unknown]
  - Glossodynia [Unknown]
  - Post procedural complication [Unknown]
  - Oropharyngeal pain [Unknown]

NARRATIVE: CASE EVENT DATE: 20230208
